FAERS Safety Report 16688070 (Version 1)
Quarter: 2019Q3

REPORT INFORMATION
  Report Type: Spontaneous
  Country: US (occurrence: US)
  Receive Date: 20190624
  Receipt Date: 20190624
  Transmission Date: 20191004
  Serious: Yes (Congenital Anomaly, Other)
  Sender: FDA-Public Use
  Company Number: None

PATIENT
  Age: 0 Day
  Sex: Male
  Weight: 3.64 kg

DRUGS (6)
  1. DESYREL [Suspect]
     Active Substance: TRAZODONE HYDROCHLORIDE
  2. HYDROXYZINE [Concomitant]
     Active Substance: HYDROXYZINE HYDROCHLORIDE
  3. CINGULAIR [Concomitant]
  4. NUVIGIL [Suspect]
     Active Substance: ARMODAFINIL
  5. OMEPRAZOLE. [Concomitant]
     Active Substance: OMEPRAZOLE
  6. PROZAC [Suspect]
     Active Substance: FLUOXETINE HYDROCHLORIDE

REACTIONS (3)
  - Maternal drugs affecting foetus [None]
  - Chordee [None]
  - Hypospadias [None]

NARRATIVE: CASE EVENT DATE: 20170823
